FAERS Safety Report 14823423 (Version 3)
Quarter: 2018Q4

REPORT INFORMATION
  Report Type: Report from Study
  Country: JP (occurrence: JP)
  Receive Date: 20180427
  Receipt Date: 20181101
  Transmission Date: 20190204
  Serious: Yes (Life-Threatening, Hospitalization, Other)
  Sender: FDA-Public Use
  Company Number: JP-TAKEDA-2018TUS013345

PATIENT
  Age: 58 Year
  Sex: Female
  Weight: 45 kg

DRUGS (28)
  1. DOXORUBICIN HYDROCHLORIDE. [Concomitant]
     Active Substance: DOXORUBICIN HYDROCHLORIDE
     Dosage: 16 MG, UNK
     Route: 042
     Dates: start: 20180327, end: 20180330
  2. DOXORUBICIN HYDROCHLORIDE. [Concomitant]
     Active Substance: DOXORUBICIN HYDROCHLORIDE
     Dosage: 20 MG, UNK
     Route: 042
     Dates: start: 20180417, end: 20180420
  3. ONCOVIN [Concomitant]
     Active Substance: VINCRISTINE SULFATE
     Dosage: 0.5 MG, UNK
     Route: 042
     Dates: start: 20180306, end: 20180309
  4. URSODEOXYCHOLIC ACID [Concomitant]
     Active Substance: URSODIOL
     Indication: PROPHYLAXIS
     Dosage: 200 MG, TID
     Route: 048
     Dates: start: 20180209
  5. RITUXAN [Concomitant]
     Active Substance: RITUXIMAB
     Dosage: 520 MG, UNK
     Route: 041
     Dates: start: 20180326, end: 20180326
  6. FEBUXOSTAT. [Suspect]
     Active Substance: FEBUXOSTAT
     Indication: TUMOUR LYSIS SYNDROME
     Dosage: 60 MG, QD
     Route: 048
     Dates: start: 20180209, end: 20180320
  7. FEBUXOSTAT. [Suspect]
     Active Substance: FEBUXOSTAT
     Dosage: 20 MG, QD
     Route: 048
     Dates: start: 20180321
  8. ENDOXAN                            /00021102/ [Concomitant]
     Active Substance: CYCLOPHOSPHAMIDE
     Indication: B-CELL LYMPHOMA
     Dosage: 1.0 G, UNK
     Route: 042
     Dates: start: 20180214, end: 20180214
  9. ONCOVIN [Concomitant]
     Active Substance: VINCRISTINE SULFATE
     Dosage: 0.5 MG, UNK
     Route: 042
     Dates: start: 20180417, end: 20180420
  10. ENDOXAN                            /00021102/ [Concomitant]
     Active Substance: CYCLOPHOSPHAMIDE
     Dosage: 1.2 G, UNK
     Route: 042
     Dates: start: 20180331, end: 20180331
  11. ETOPOSIDE                          /00511902/ [Concomitant]
     Active Substance: ETOPOSIDE
     Dosage: 80 MG, UNK
     Route: 041
     Dates: start: 20180327, end: 20180330
  12. ENDOXAN                            /00021102/ [Concomitant]
     Active Substance: CYCLOPHOSPHAMIDE
     Dosage: 1 G, UNK
     Route: 042
     Dates: start: 20180310, end: 20180310
  13. PREDONINE [Concomitant]
     Active Substance: PREDNISOLONE
     Dosage: 80 MG, UNK
     Route: 048
     Dates: start: 20180417, end: 20180421
  14. RABEPRAZOLE SODIUM. [Concomitant]
     Active Substance: RABEPRAZOLE SODIUM
     Indication: PROPHYLAXIS
     Dosage: 10 MG, QD
     Route: 048
     Dates: start: 20180209
  15. RITUXAN [Concomitant]
     Active Substance: RITUXIMAB
     Indication: B-CELL LYMPHOMA
     Dosage: 520 MG, UNK
     Route: 041
     Dates: start: 20180305, end: 20180305
  16. BAKTAR [Concomitant]
     Active Substance: SULFAMETHOXAZOLE\TRIMETHOPRIM
     Indication: PROPHYLAXIS
     Dosage: 1 DF, QD
     Route: 048
     Dates: start: 20180209
  17. ENDOXAN                            /00021102/ [Concomitant]
     Active Substance: CYCLOPHOSPHAMIDE
     Dosage: 1.5 G, UNK
     Route: 042
     Dates: start: 20180421, end: 20180421
  18. PREDONINE [Concomitant]
     Active Substance: PREDNISOLONE
     Dosage: 80 MG, UNK
     Route: 048
     Dates: start: 20180327, end: 20180331
  19. DOXORUBICIN HYDROCHLORIDE. [Concomitant]
     Active Substance: DOXORUBICIN HYDROCHLORIDE
     Dosage: 14 MG, UNK
     Route: 042
     Dates: start: 20180306, end: 20180309
  20. ONCOVIN [Concomitant]
     Active Substance: VINCRISTINE SULFATE
     Indication: B-CELL LYMPHOMA
     Dosage: 1.9 MG, UNK
     Route: 042
     Dates: start: 20180214, end: 20180214
  21. ONCOVIN [Concomitant]
     Active Substance: VINCRISTINE SULFATE
     Dosage: 0.5 MG, UNK
     Route: 042
     Dates: start: 20180327, end: 20180330
  22. PREDONINE [Concomitant]
     Active Substance: PREDNISOLONE
     Indication: B-CELL LYMPHOMA
     Dosage: 100 MG, UNK
     Route: 048
     Dates: start: 20180214, end: 20180218
  23. PREDONINE [Concomitant]
     Active Substance: PREDNISOLONE
     Dosage: 80 MG, UNK
     Route: 048
     Dates: start: 20180306, end: 20180310
  24. ACICLOVIR [Concomitant]
     Active Substance: ACYCLOVIR
     Indication: PROPHYLAXIS
     Dosage: 200 MG, QD
     Route: 048
     Dates: start: 20180209, end: 20180220
  25. ETOPOSIDE                          /00511902/ [Concomitant]
     Active Substance: ETOPOSIDE
     Indication: B-CELL LYMPHOMA
     Dosage: 70 MG, UNK
     Route: 041
     Dates: start: 20180306, end: 20180309
  26. ETOPOSIDE                          /00511902/ [Concomitant]
     Active Substance: ETOPOSIDE
     Dosage: 100 MG, UNK
     Route: 041
     Dates: start: 20180417, end: 20180420
  27. DOXORUBICIN HYDROCHLORIDE. [Concomitant]
     Active Substance: DOXORUBICIN HYDROCHLORIDE
     Indication: B-CELL LYMPHOMA
     Dosage: 70 MG, UNK
     Route: 042
     Dates: start: 20180214, end: 20180214
  28. RITUXAN [Concomitant]
     Active Substance: RITUXIMAB
     Dosage: 600 MG, UNK
     Route: 041
     Dates: start: 20180416, end: 20180416

REACTIONS (10)
  - Alanine aminotransferase increased [Recovered/Resolved]
  - Acute kidney injury [Recovered/Resolved]
  - Tumour lysis syndrome [Recovering/Resolving]
  - Anuria [Recovering/Resolving]
  - Blood lactate dehydrogenase increased [Recovered/Resolved]
  - Blood urea increased [Recovered/Resolved]
  - Blood phosphorus increased [Recovered/Resolved]
  - Blood calcium decreased [Recovered/Resolved]
  - Blood creatinine increased [Recovered/Resolved]
  - Aspartate aminotransferase increased [Recovered/Resolved]

NARRATIVE: CASE EVENT DATE: 20180215
